FAERS Safety Report 5006026-1 (Version None)
Quarter: 2006Q2

REPORT INFORMATION
  Report Type: 
  Country: None (occurrence: None)
  Receive Date: 20060517
  Receipt Date: 20060517
  Transmission Date: 20061013
  Serious: Yes (Life-Threatening, Other)
  Sender: FDA-Public Use
  Company Number: None

PATIENT
  Age: 65 Year
  Sex: Female
  Weight: 56.6996 kg

DRUGS (2)
  1. FLEET PHOSPHO SODA [Suspect]
     Indication: COLONOSCOPY
     Dosage: 3 TBLS W/ 4OZS JUICE  7PM   3 TBLS W/ 4 OZS JUIC 6AM
     Dates: start: 20050731
  2. FLEET PHOSPHO SODA [Suspect]
     Indication: COLONOSCOPY
     Dosage: 3 TBLS W/ 4OZS JUICE  7PM   3 TBLS W/ 4 OZS JUIC 6AM
     Dates: start: 20050801

REACTIONS (5)
  - CHAPPED LIPS [None]
  - DEHYDRATION [None]
  - NAUSEA [None]
  - RENAL DISORDER [None]
  - WEIGHT DECREASED [None]
